FAERS Safety Report 8078560-1 (Version None)
Quarter: 2012Q1

REPORT INFORMATION
  Report Type: 
  Country: None (occurrence: None)
  Receive Date: 20120124
  Receipt Date: 20120111
  Transmission Date: 20120608
  Serious: Yes (Hospitalization)
  Sender: FDA-Public Use
  Company Number: AMAG201200005

PATIENT
  Age: 41 Year
  Sex: Female
  Weight: 59.9 kg

DRUGS (1)
  1. FERAHEME [Suspect]
     Indication: IRON DEFICIENCY ANAEMIA
     Dosage: 1 ML, SINGLE (30 MG), IV BOLUS
     Route: 040
     Dates: start: 20111020, end: 20111020

REACTIONS (10)
  - HYPERHIDROSIS [None]
  - NAUSEA [None]
  - LOSS OF CONSCIOUSNESS [None]
  - PULSE ABNORMAL [None]
  - FLUSHING [None]
  - URINARY INCONTINENCE [None]
  - HYPOTENSION [None]
  - FAECAL INCONTINENCE [None]
  - DISORIENTATION [None]
  - OXYGEN SATURATION DECREASED [None]
